FAERS Safety Report 24015790 (Version 3)
Quarter: 2024Q3

REPORT INFORMATION
  Report Type: Spontaneous
  Country: US (occurrence: US)
  Receive Date: 20240626
  Receipt Date: 20240702
  Transmission Date: 20241017
  Serious: Yes (Hospitalization, Other)
  Sender: PFIZER
  Company Number: US-MLMSERVICE-20240613-PI099631-00271-1

PATIENT
  Age: 63 Year
  Sex: Male

DRUGS (3)
  1. RITUXIMAB [Suspect]
     Active Substance: RITUXIMAB
     Indication: Interstitial lung disease
     Dosage: UNK
  2. PREDNISONE [Suspect]
     Active Substance: PREDNISONE
     Indication: Interstitial lung disease
     Dosage: STARTED WITH SUBSEQUENT DOSE INCREMENTS
  3. PREDNISONE [Suspect]
     Active Substance: PREDNISONE
     Dosage: TAPERING DOSE

REACTIONS (2)
  - Off label use [Recovering/Resolving]
  - Interstitial lung disease [Recovering/Resolving]
